FAERS Safety Report 23934560 (Version 4)
Quarter: 2025Q1

REPORT INFORMATION
  Report Type: Spontaneous
  Country: US (occurrence: US)
  Receive Date: 20240603
  Receipt Date: 20250121
  Transmission Date: 20250409
  Serious: No
  Sender: NEUROCRINE BIOSCIENCES
  Company Number: US-NEUROCRINE BIOSCIENCES INC.-2024NBI05066

PATIENT
  Age: 82 Year
  Sex: Male

DRUGS (3)
  1. INGREZZA [Suspect]
     Active Substance: VALBENAZINE
     Indication: Dyskinesia
     Route: 065
     Dates: start: 20230818
  2. INGREZZA [Suspect]
     Active Substance: VALBENAZINE
     Indication: Chest pain
  3. INGREZZA [Suspect]
     Active Substance: VALBENAZINE
     Indication: Muscle twitching

REACTIONS (10)
  - Chest pain [Unknown]
  - Nerve injury [Not Recovered/Not Resolved]
  - Musculoskeletal stiffness [Not Recovered/Not Resolved]
  - Pain [Not Recovered/Not Resolved]
  - Injury [Not Recovered/Not Resolved]
  - Muscle injury [Not Recovered/Not Resolved]
  - Headache [Not Recovered/Not Resolved]
  - Somnolence [Unknown]
  - Gait disturbance [Unknown]
  - Off label use [Unknown]

NARRATIVE: CASE EVENT DATE: 20230801
